FAERS Safety Report 13972763 (Version 1)
Quarter: 2017Q3

REPORT INFORMATION
  Report Type: Spontaneous
  Country: US (occurrence: US)
  Receive Date: 20170914
  Receipt Date: 20170914
  Transmission Date: 20171128
  Serious: No
  Sender: FDA-Public Use
  Company Number: US-ASTELLAS-2017US002732

PATIENT
  Sex: Male

DRUGS (1)
  1. XTANDI [Suspect]
     Active Substance: ENZALUTAMIDE
     Indication: PROSTATE CANCER
     Dosage: 160 MG, ONCE DAILY (SWITCHED FROM MORNING TO AT NIGHT BEFORE BED)
     Route: 048
     Dates: start: 20161230

REACTIONS (6)
  - Pain [Unknown]
  - Dizziness [Unknown]
  - Fall [Unknown]
  - Amnesia [Unknown]
  - Memory impairment [Not Recovered/Not Resolved]
  - Nausea [Unknown]
